FAERS Safety Report 5891509-2 (Version None)
Quarter: 2008Q3

REPORT INFORMATION
  Report Type: 
  Country: None (occurrence: None)
  Receive Date: 20080922
  Receipt Date: 20080904
  Transmission Date: 20090109
  Serious: No
  Sender: FDA-Public Use
  Company Number: US-BAYER-200833129NA

PATIENT
  Age: 42 Year
  Sex: Male
  Weight: 136 kg

DRUGS (2)
  1. MAGNEVIST [Suspect]
     Indication: NUCLEAR MAGNETIC RESONANCE IMAGING
     Dosage: TOTAL DAILY DOSE: 20 ML
     Route: 042
     Dates: start: 20080904, end: 20080904
  2. DIABETIC MEDICATION [Concomitant]

REACTIONS (1)
  - URTICARIA [None]
